FAERS Safety Report 7034903-9 (Version None)
Quarter: 2010Q4

REPORT INFORMATION
  Report Type: 
  Country: None (occurrence: None)
  Receive Date: 20101008
  Receipt Date: 20101005
  Transmission Date: 20110411
  Serious: No
  Sender: FDA-Public Use
  Company Number: US-PFIZER INC-2010126803

PATIENT
  Age: 18 Year
  Sex: Female

DRUGS (2)
  1. DOXYCYCLINE HYCLATE [Suspect]
     Dosage: UNK
     Dates: start: 20100301
  2. NICOTINAMIDE [Concomitant]
     Dosage: 1 TABLET DAILY
     Route: 048

REACTIONS (1)
  - ABDOMINAL DISCOMFORT [None]
